FAERS Safety Report 7006071-0 (Version None)
Quarter: 2010Q3

REPORT INFORMATION
  Report Type: 
  Country: None (occurrence: None)
  Receive Date: 20100921
  Receipt Date: 20100909
  Transmission Date: 20110219
  Serious: Yes (Other)
  Sender: FDA-Public Use
  Company Number: ZA-PFIZER INC-2010113804

PATIENT
  Age: 51 Year
  Sex: Male

DRUGS (2)
  1. ZITHROMAX [Suspect]
     Indication: SINUSITIS
     Dosage: UNK
     Route: 048
     Dates: start: 20100820, end: 20100820
  2. ZITHROMAX [Suspect]
     Indication: BRONCHITIS

REACTIONS (4)
  - ABDOMINAL PAIN UPPER [None]
  - DELIRIUM [None]
  - DIZZINESS [None]
  - NAUSEA [None]
